FAERS Safety Report 19955429 (Version 1)
Quarter: 2021Q4

REPORT INFORMATION
  Report Type: Spontaneous
  Country: IN (occurrence: IN)
  Receive Date: 20211014
  Receipt Date: 20211014
  Transmission Date: 20220304
  Serious: Yes (Other)
  Sender: FDA-Public Use
  Company Number: IN-PFIZER INC-202101337401

PATIENT
  Age: 35 Year
  Sex: Female

DRUGS (8)
  1. ADRIAMYCIN [Suspect]
     Active Substance: DOXORUBICIN HYDROCHLORIDE
     Dosage: UNK
  2. CYCLOPHOSPHAMIDE [Suspect]
     Active Substance: CYCLOPHOSPHAMIDE
     Dosage: UNK
  3. TAXOL [Suspect]
     Active Substance: PACLITAXEL
     Dosage: UNK
  4. HERCEPTIN [Suspect]
     Active Substance: TRASTUZUMAB
     Dosage: UNK
  5. TRASTUZUMAB [Suspect]
     Active Substance: TRASTUZUMAB
     Dosage: UNK
  6. TAMOXIFEN [Suspect]
     Active Substance: TAMOXIFEN
     Dosage: UNK
     Dates: start: 201903, end: 202009
  7. LAPATINIB [Suspect]
     Active Substance: LAPATINIB
     Dosage: 1250 MG, DAILY
  8. LETROZOLE [Suspect]
     Active Substance: LETROZOLE
     Dosage: 2.5 MG, 1X/DAY
     Dates: start: 202104, end: 202107

REACTIONS (4)
  - Hemiparesis [Unknown]
  - Headache [Unknown]
  - Vomiting [Unknown]
  - Neoplasm progression [Recovering/Resolving]
